FAERS Safety Report 7565749-0 (Version None)
Quarter: 2011Q2

REPORT INFORMATION
  Report Type: 
  Country: None (occurrence: None)
  Receive Date: 20110616
  Receipt Date: 20110609
  Transmission Date: 20111010
  Serious: Yes (Hospitalization, Other)
  Sender: FDA-Public Use
  Company Number: 2010SP016190

PATIENT
  Age: 36 Year
  Sex: Female
  Weight: 112.9457 kg

DRUGS (4)
  1. NUVARING [Suspect]
     Indication: CONTRACEPTION
     Dates: start: 20060101
  2. NUVARING [Suspect]
     Indication: CONTRACEPTION
     Dates: start: 20080201, end: 20080318
  3. NUVARING [Suspect]
     Indication: CONTRACEPTION
     Dates: start: 20040101
  4. NUVARING [Suspect]
     Indication: CONTRACEPTION
     Dates: start: 20050823

REACTIONS (25)
  - PULMONARY EMBOLISM [None]
  - DEEP VEIN THROMBOSIS [None]
  - SYSTEMIC LUPUS ERYTHEMATOSUS [None]
  - PULMONARY INFARCTION [None]
  - PREGNANCY WITH CONTRACEPTIVE DEVICE [None]
  - DRUG EXPOSURE DURING PREGNANCY [None]
  - HEART RATE IRREGULAR [None]
  - MALAISE [None]
  - HALLUCINATION [None]
  - CARDIOMEGALY [None]
  - HYPERCOAGULATION [None]
  - PALPITATIONS [None]
  - CERVICAL DYSPLASIA [None]
  - ELECTROCARDIOGRAM P WAVE ABNORMAL [None]
  - MULTIPLE INJURIES [None]
  - HUMAN PAPILLOMA VIRUS TEST POSITIVE [None]
  - MENTAL STATUS CHANGES [None]
  - PYREXIA [None]
  - ELECTROCARDIOGRAM T WAVE INVERSION [None]
  - ABORTION INDUCED [None]
  - ABORTION INCOMPLETE [None]
  - SINUS TACHYCARDIA [None]
  - CHILLS [None]
  - PROCEDURAL PAIN [None]
  - PERICARDIAL EFFUSION [None]
